FAERS Safety Report 6404261-9 (Version None)
Quarter: 2009Q4

REPORT INFORMATION
  Report Type: 
  Country: None (occurrence: None)
  Receive Date: 20091016
  Receipt Date: 20091006
  Transmission Date: 20100525
  Serious: Yes (Hospitalization)
  Sender: FDA-Public Use
  Company Number: A0807454A

PATIENT
  Age: 66 Year
  Sex: Female
  Weight: 47.9 kg

DRUGS (3)
  1. TOPOTECAN [Suspect]
     Dosage: 1.5MGM2 PER DAY
     Route: 048
     Dates: start: 20090803
  2. RADIOTHERAPY [Suspect]
     Dosage: 3GY PER DAY
     Dates: start: 20090803, end: 20090814
  3. ALIMTA [Concomitant]
     Dates: start: 20090925

REACTIONS (10)
  - ASTHENIA [None]
  - DEHYDRATION [None]
  - DISEASE PROGRESSION [None]
  - ENCEPHALOPATHY [None]
  - FEBRILE NEUTROPENIA [None]
  - HEADACHE [None]
  - HYPONATRAEMIA [None]
  - MALNUTRITION [None]
  - PNEUMONIA [None]
  - SEPSIS [None]
